FAERS Safety Report 15117242 (Version 1)
Quarter: 2018Q3

REPORT INFORMATION
  Report Type: Spontaneous
  Country: JP (occurrence: JP)
  Receive Date: 20180706
  Receipt Date: 20180706
  Transmission Date: 20181010
  Serious: Yes (Death, Hospitalization)
  Sender: FDA-Public Use
  Company Number: JP-DSJP-DSJ-2018-126316AA

PATIENT

DRUGS (1)
  1. LIXIANA TABLETS [Suspect]
     Active Substance: EDOXABAN TOSYLATE
     Indication: TROUSSEAU^S SYNDROME
     Dosage: 30 MG, QD
     Route: 048

REACTIONS (2)
  - Haematemesis [Unknown]
  - Cerebral infarction [Fatal]
